FAERS Safety Report 11272346 (Version 1)
Quarter: 2015Q3

REPORT INFORMATION
  Report Type: Spontaneous
  Country: US (occurrence: None)
  Receive Date: 20150713
  Receipt Date: 20150713
  Transmission Date: 20151125
  Serious: No
  Sender: FDA-Public Use
  Company Number: None

PATIENT

DRUGS (1)
  1. NIACIN. [Suspect]
     Active Substance: NIACIN
     Indication: BLOOD CHOLESTEROL INCREASED
     Route: 048

REACTIONS (6)
  - Pruritus [None]
  - Product quality issue [None]
  - Feeling abnormal [None]
  - Feeling hot [None]
  - Discomfort [None]
  - Sunburn [None]

NARRATIVE: CASE EVENT DATE: 20150709
